FAERS Safety Report 10880445 (Version 2)
Quarter: 2015Q2

REPORT INFORMATION
  Report Type: Spontaneous
  Country: GB (occurrence: GB)
  Receive Date: 20150303
  Receipt Date: 20150406
  Transmission Date: 20150821
  Serious: Yes (Other)
  Sender: FDA-Public Use
  Company Number: GB-AMGEN-GBRSP2015018809

PATIENT
  Age: 26 Year
  Sex: Male

DRUGS (1)
  1. ENBREL [Suspect]
     Active Substance: ETANERCEPT
     Indication: ANKYLOSING SPONDYLITIS
     Dosage: UNK
     Route: 065
     Dates: end: 201502

REACTIONS (4)
  - Condition aggravated [Unknown]
  - Skin cancer [Unknown]
  - Urinary tract infection [Unknown]
  - Melanocytic naevus [Unknown]

NARRATIVE: CASE EVENT DATE: 201502
